FAERS Safety Report 19045324 (Version 1)
Quarter: 2021Q1

REPORT INFORMATION
  Report Type: Spontaneous
  Country: US (occurrence: US)
  Receive Date: 20210322
  Receipt Date: 20210322
  Transmission Date: 20210420
  Serious: Yes (Hospitalization)
  Sender: FDA-Public Use
  Company Number: US-ASTRAZENECA-2021A165063

PATIENT
  Age: 46 Year
  Sex: Female

DRUGS (4)
  1. LYNPARZA [Suspect]
     Active Substance: OLAPARIB
     Indication: OVARIAN CANCER
     Route: 048
     Dates: start: 202002, end: 2020
  2. CARBOPLATIN. [Concomitant]
     Active Substance: CARBOPLATIN
     Dosage: UNK, 6 ROUNDS
     Dates: end: 202008
  3. TAXOL [Concomitant]
     Active Substance: PACLITAXEL
     Dosage: UNK. 6 ROUNDS
     Dates: end: 202008
  4. LYNPARZA [Suspect]
     Active Substance: OLAPARIB
     Indication: OVARIAN CANCER
     Route: 048
     Dates: start: 202009

REACTIONS (3)
  - COVID-19 [Recovered/Resolved]
  - Cancer surgery [Recovered/Resolved]
  - Illness [Recovered/Resolved]

NARRATIVE: CASE EVENT DATE: 2020
